FAERS Safety Report 18001634 (Version 1)
Quarter: 2020Q3

REPORT INFORMATION
  Report Type: Spontaneous
  Country: FR (occurrence: FR)
  Receive Date: 20200709
  Receipt Date: 20200709
  Transmission Date: 20201103
  Serious: Yes (Other)
  Sender: FDA-Public Use
  Company Number: FR-GILEAD-2020-0471851

PATIENT
  Age: 73 Year
  Sex: Female

DRUGS (1)
  1. YESCARTA [Suspect]
     Active Substance: AXICABTAGENE CILOLEUCEL
     Indication: DIFFUSE LARGE B-CELL LYMPHOMA REFRACTORY
     Dosage: UNK
     Route: 042
     Dates: start: 20200519, end: 20200519

REACTIONS (2)
  - Neurotoxicity [Recovering/Resolving]
  - Systemic mycosis [Unknown]

NARRATIVE: CASE EVENT DATE: 20200526
